FAERS Safety Report 7894229-8 (Version None)
Quarter: 2011Q4

REPORT INFORMATION
  Report Type: 
  Country: None (occurrence: None)
  Receive Date: 20111104
  Receipt Date: 20111026
  Transmission Date: 20120403
  Serious: Yes (Hospitalization)
  Sender: FDA-Public Use
  Company Number: BR-US-EMD SERONO, INC.-7036998

PATIENT
  Sex: Male

DRUGS (8)
  1. ACETAMINOPHEN W/ CODEINE [Concomitant]
     Indication: PAIN
  2. VENLIFT [Concomitant]
  3. CLONAZEPAM [Concomitant]
     Indication: SLEEP DISORDER
  4. VENLIFT [Concomitant]
     Indication: DEPRESSION
  5. CAPTOPRIL [Concomitant]
     Indication: HYPERTENSION
  6. REBIF [Suspect]
     Indication: RELAPSING-REMITTING MULTIPLE SCLEROSIS
     Dates: start: 20090903
  7. TEGRETOL [Concomitant]
     Indication: PAIN
  8. TEGRETOL [Concomitant]

REACTIONS (18)
  - IRRITABILITY [None]
  - WEIGHT DECREASED [None]
  - MYALGIA [None]
  - HAEMORRHOIDS [None]
  - HYPOKINESIA [None]
  - CONSTIPATION [None]
  - ABDOMINAL PAIN [None]
  - INTERVERTEBRAL DISC PROTRUSION [None]
  - VISION BLURRED [None]
  - GALLBLADDER NECROSIS [None]
  - ASTHENIA [None]
  - CYSTITIS [None]
  - DEPRESSION [None]
  - CHOLELITHIASIS [None]
  - COGNITIVE DISORDER [None]
  - AGGRESSION [None]
  - UMBILICAL HERNIA [None]
  - TENSION [None]
